FAERS Safety Report 6661077-6 (Version None)
Quarter: 2010Q1

REPORT INFORMATION
  Report Type: 
  Country: None (occurrence: None)
  Receive Date: 20100331
  Receipt Date: 20100324
  Transmission Date: 20100710
  Serious: Yes (Other)
  Sender: FDA-Public Use
  Company Number: B0622630A

PATIENT
  Sex: Female

DRUGS (1)
  1. NIQUITIN CQ GUM 4MG [Suspect]
     Route: 065

REACTIONS (10)
  - CRYING [None]
  - DENTAL IMPLANTATION [None]
  - DEPRESSED MOOD [None]
  - DRUG DEPENDENCE [None]
  - GINGIVAL DISORDER [None]
  - INTENTIONAL DRUG MISUSE [None]
  - LOOSE TOOTH [None]
  - MOUTH ULCERATION [None]
  - STRESS [None]
  - SUICIDAL IDEATION [None]
